FAERS Safety Report 10549140 (Version 1)
Quarter: 2014Q4

REPORT INFORMATION
  Report Type: Spontaneous
  Country: US (occurrence: None)
  Receive Date: 20141016
  Receipt Date: 20141016
  Transmission Date: 20150529
  Serious: No
  Sender: FDA-Public Use
  Company Number: CABO-14004381

PATIENT
  Age: 64 Year
  Sex: Female
  Weight: 153 kg

DRUGS (11)
  1. COMETRIQ [Suspect]
     Active Substance: CABOZANTINIB S-MALATE
     Indication: RENAL CANCER
     Route: 048
     Dates: start: 20140531
  2. MIRALAX(MACROGOL) [Concomitant]
  3. BENZONATATE. [Concomitant]
     Active Substance: BENZONATATE
  4. LEVOTHYROXINE [Concomitant]
     Active Substance: LEVOTHYROXINE
  5. HYDROCODONE [Concomitant]
     Active Substance: HYDROCODONE
  6. BUPROPION [Concomitant]
     Active Substance: BUPROPION
  7. PAXIL(PAROXETINE HYDROCHLORIDE) [Concomitant]
  8. OXYCONTIN(OXYCODONE HYDROCHLORIDE) [Concomitant]
  9. PAROXETINE [Concomitant]
     Active Substance: PAROXETINE\PAROXETINE HYDROCHLORIDE
  10. OMEPRAZOLE. [Concomitant]
     Active Substance: OMEPRAZOLE
  11. WELLBUTRIN(BUPROPION HYDROCHLORIDE) [Concomitant]

REACTIONS (5)
  - Hyperaesthesia [None]
  - Fatigue [None]
  - Constipation [None]
  - Decreased appetite [None]
  - Off label use [None]

NARRATIVE: CASE EVENT DATE: 2014
